FAERS Safety Report 20731837 (Version 2)
Quarter: 2022Q2

REPORT INFORMATION
  Report Type: Report from Study
  Country: US (occurrence: US)
  Receive Date: 20220420
  Receipt Date: 20220428
  Transmission Date: 20220720
  Serious: Yes (Hospitalization)
  Sender: FDA-Public Use
  Company Number: US-BAYER-2022A057855

PATIENT
  Age: 71 Year
  Sex: Female
  Weight: 103.4 kg

DRUGS (2)
  1. ADEMPAS [Suspect]
     Active Substance: RIOCIGUAT
     Indication: Pulmonary arterial hypertension
     Dosage: 0.5 MG, TID
     Route: 048
     Dates: start: 20220330
  2. WARFARIN [Concomitant]
     Active Substance: WARFARIN
     Dosage: UNK

REACTIONS (4)
  - Lung disorder [None]
  - Dyspnoea [None]
  - Gastrointestinal haemorrhage [None]
  - Cardiovascular examination [None]

NARRATIVE: CASE EVENT DATE: 20220101
